FAERS Safety Report 5207022-1 (Version None)
Quarter: 2007Q1

REPORT INFORMATION
  Report Type: 
  Country: None (occurrence: None)
  Receive Date: 20070112
  Receipt Date: 20070102
  Transmission Date: 20070707
  Serious: Yes (Other)
  Sender: FDA-Public Use
  Company Number: PHEH2006US15112

PATIENT
  Age: 65 Year
  Sex: Female

DRUGS (1)
  1. ZOMETA [Suspect]
     Indication: BONE NEOPLASM MALIGNANT
     Dates: start: 20020101, end: 20051101

REACTIONS (10)
  - BONE DEBRIDEMENT [None]
  - BONE DISORDER [None]
  - BREATH ODOUR [None]
  - DENTAL FISTULA [None]
  - GINGIVITIS [None]
  - INFECTION [None]
  - OSTEONECROSIS [None]
  - PAIN [None]
  - SWELLING [None]
  - TOOTH EXTRACTION [None]
